FAERS Safety Report 15741732 (Version 2)
Quarter: 2020Q1

REPORT INFORMATION
  Report Type: Report from Study
  Country: US (occurrence: US)
  Receive Date: 20181219
  Receipt Date: 20200207
  Transmission Date: 20200409
  Serious: Yes (Hospitalization, Other)
  Sender: FDA-Public Use
  Company Number: US-ACTELION-A-NJ2018-181851

PATIENT
  Age: 70 Year
  Sex: Female

DRUGS (11)
  1. PROLIA [Concomitant]
     Active Substance: DENOSUMAB
  2. LEVOTHYROXINE. [Concomitant]
     Active Substance: LEVOTHYROXINE
  3. OPSUMIT [Suspect]
     Active Substance: MACITENTAN
     Indication: PULMONARY ARTERIAL HYPERTENSION
     Dosage: UNK
     Route: 048
     Dates: start: 20161015
  4. NORVASC [Concomitant]
     Active Substance: AMLODIPINE BESYLATE
  5. SILDENAFIL. [Concomitant]
     Active Substance: SILDENAFIL
  6. FURSEMIDE [Concomitant]
     Active Substance: FUROSEMIDE
  7. ROZEREM [Concomitant]
     Active Substance: RAMELTEON
  8. POTASSIUM CHLORIDE. [Concomitant]
     Active Substance: POTASSIUM CHLORIDE
  9. HYDROXYZINE HCL [Concomitant]
     Active Substance: HYDROXYZINE HYDROCHLORIDE
  10. TIZANIDINE. [Concomitant]
     Active Substance: TIZANIDINE
  11. OPSUMIT [Suspect]
     Active Substance: MACITENTAN
     Dosage: UNK
     Route: 048
     Dates: start: 20160922, end: 20161005

REACTIONS (17)
  - Fatigue [Recovered/Resolved]
  - Gastrooesophageal reflux disease [Not Recovered/Not Resolved]
  - Malaise [Not Recovered/Not Resolved]
  - Syncope [Not Recovered/Not Resolved]
  - Paranasal sinus hypersecretion [Recovered/Resolved]
  - Dysphonia [Recovered/Resolved]
  - Asthenia [Recovered/Resolved]
  - Hallucination [Recovered/Resolved]
  - Sepsis [Recovered/Resolved]
  - Pancytopenia [Not Recovered/Not Resolved]
  - Sinusitis [Recovered/Resolved]
  - Hypertension [Recovered/Resolved with Sequelae]
  - Subdural haematoma [Recovered/Resolved]
  - Pyrexia [Recovered/Resolved]
  - Pain [Recovered/Resolved]
  - Paranasal sinus discomfort [Recovered/Resolved]
  - Cough [Not Recovered/Not Resolved]

NARRATIVE: CASE EVENT DATE: 20181001
